FAERS Safety Report 5852987-8 (Version None)
Quarter: 2008Q3

REPORT INFORMATION
  Report Type: 
  Country: None (occurrence: None)
  Receive Date: 20080821
  Receipt Date: 20080811
  Transmission Date: 20090109
  Serious: Yes (Life-Threatening, Hospitalization)
  Sender: FDA-Public Use
  Company Number: FR-ROCHE-580613

PATIENT
  Sex: Male

DRUGS (5)
  1. CAPECITABINE [Suspect]
     Indication: METASTATIC GASTRIC CANCER
     Dosage: DOSE: 8 TABLETS PER DAY
     Route: 048
     Dates: start: 20080222
  2. EPIRUBICIN [Suspect]
     Indication: METASTATIC GASTRIC CANCER
     Route: 042
     Dates: start: 20080221
  3. CISPLATYL [Suspect]
     Indication: METASTATIC GASTRIC CANCER
     Route: 042
     Dates: start: 20080221
  4. ARANESP [Concomitant]
     Dates: start: 20080320, end: 20080410
  5. GRANOCYTE 34 [Concomitant]
     Dosage: TDD: 1 INJ/ 6 DAYS
     Dates: start: 20080325, end: 20080421

REACTIONS (1)
  - FEBRILE BONE MARROW APLASIA [None]
